FAERS Safety Report 10007130 (Version 1)
Quarter: 2014Q1

REPORT INFORMATION
  Report Type: Spontaneous
  Country: US (occurrence: US)
  Receive Date: 20140313
  Receipt Date: 20140313
  Transmission Date: 20141002
  Serious: Yes (Death, Other)
  Sender: FDA-Public Use
  Company Number: US-MERCK-1403USA003516

PATIENT
  Age: 63 Year
  Sex: Male

DRUGS (1)
  1. NOXAFIL [Suspect]
     Indication: CHEMOTHERAPY
     Dosage: 40 MG, 2 TEASPOONS 3 TIME PER DAY
     Route: 048
     Dates: start: 20130103

REACTIONS (4)
  - Death [Fatal]
  - Multi-organ failure [Unknown]
  - Overdose [Unknown]
  - Escherichia infection [Unknown]
